FAERS Safety Report 5399500-X (Version None)
Quarter: 2007Q3

REPORT INFORMATION
  Report Type: 
  Country: None (occurrence: None)
  Receive Date: 20070727
  Receipt Date: 20070718
  Transmission Date: 20080115
  Serious: Yes (Death, Other)
  Sender: FDA-Public Use
  Company Number: JP-PFIZER INC-2007054628

PATIENT
  Age: 81 Year
  Sex: Male

DRUGS (4)
  1. ZYVOX [Suspect]
     Indication: STAPHYLOCOCCAL INFECTION
     Dosage: DAILY DOSE:1200MG
     Route: 042
     Dates: start: 20070504, end: 20070518
  2. FAMOTIDINE [Concomitant]
  3. ADONA [Concomitant]
  4. TRANSAMIN [Concomitant]

REACTIONS (2)
  - DEATH [None]
  - THROMBOCYTOPENIA [None]
